FAERS Safety Report 7983330-6 (Version None)
Quarter: 2011Q4

REPORT INFORMATION
  Report Type: 
  Country: None (occurrence: None)
  Receive Date: 20111215
  Receipt Date: 20111212
  Transmission Date: 20120403
  Serious: No
  Sender: FDA-Public Use
  Company Number: US-BAYER-2011-120241

PATIENT
  Age: 38 Year
  Sex: Female
  Weight: 55 kg

DRUGS (7)
  1. MULTI-VITAMINS [Concomitant]
  2. FISH OIL [Concomitant]
  3. CONTRACEPTIVES NOS [Concomitant]
  4. CALCIUM [Concomitant]
  5. GLUCOSAMINE [Concomitant]
  6. ALEVE (CAPLET) [Suspect]
     Indication: TENDONITIS
     Dosage: 2 DF, BID
     Route: 048
     Dates: start: 20111208, end: 20111210
  7. NAPROXEN [Suspect]
     Indication: TENDONITIS

REACTIONS (1)
  - DYSPEPSIA [None]
